FAERS Safety Report 14857693 (Version 1)
Quarter: 2018Q2

REPORT INFORMATION
  Report Type: Spontaneous
  Country: US (occurrence: US)
  Receive Date: 20180508
  Receipt Date: 20180508
  Transmission Date: 20180711
  Serious: Yes (Other)
  Sender: FDA-Public Use
  Company Number: US-BEH-2018090351

PATIENT
  Age: 75 Year
  Sex: Female

DRUGS (2)
  1. PYRIDOSTIGMINE /00221802/ [Suspect]
     Active Substance: PYRIDOSTIGMINE BROMIDE
     Indication: MYASTHENIA GRAVIS CRISIS
     Route: 065
  2. HUMAN IMMUNOGLOBULIN IV (INN) [Suspect]
     Active Substance: HUMAN IMMUNOGLOBULIN G
     Indication: MYASTHENIA GRAVIS CRISIS
     Dosage: UNK
     Route: 042

REACTIONS (6)
  - Troponin increased [None]
  - Stress [None]
  - Respiratory distress [Unknown]
  - Transfusion-related circulatory overload [Unknown]
  - Electrocardiogram ST segment elevation [None]
  - Stress cardiomyopathy [None]
